FAERS Safety Report 10712836 (Version 1)
Quarter: 2015Q1

REPORT INFORMATION
  Report Type: Spontaneous
  Country: CA (occurrence: CA)
  Receive Date: 20150115
  Receipt Date: 20150115
  Transmission Date: 20150721
  Serious: Yes (Hospitalization, Other)
  Sender: FDA-Public Use
  Company Number: CA-BAYER-2015-002199

PATIENT
  Age: 72 Year
  Sex: Male

DRUGS (3)
  1. ENBREL [Suspect]
     Active Substance: ETANERCEPT
     Dosage: 50 MG, QD
     Route: 065
  2. COVERSYL [Concomitant]
     Active Substance: PERINDOPRIL
     Dosage: UNK
  3. ASPRIN [Suspect]
     Active Substance: ASPIRIN
     Dosage: 1 DF, QD
     Route: 065

REACTIONS (9)
  - Abdominal pain upper [Not Recovered/Not Resolved]
  - Acne [Not Recovered/Not Resolved]
  - Fluid retention [Not Recovered/Not Resolved]
  - Rash generalised [Not Recovered/Not Resolved]
  - Weight increased [Not Recovered/Not Resolved]
  - Blood pressure abnormal [Not Recovered/Not Resolved]
  - Myocardial infarction [Not Recovered/Not Resolved]
  - Nephrolithiasis [Not Recovered/Not Resolved]
  - Rash pruritic [Not Recovered/Not Resolved]
